FAERS Safety Report 21500690 (Version 1)
Quarter: 2022Q4

REPORT INFORMATION
  Report Type: Spontaneous
  Country: US (occurrence: US)
  Receive Date: 20221025
  Receipt Date: 20221025
  Transmission Date: 20230112
  Serious: Yes (Hospitalization, Other)
  Sender: FDA-Public Use
  Company Number: US-MLMSERVICE-20221010-3849022-1

PATIENT
  Age: 25 Year
  Sex: Female

DRUGS (1)
  1. PAROXETINE [Suspect]
     Active Substance: PAROXETINE
     Indication: Product used for unknown indication
     Dosage: 2100 MILLIGRAM, TOTAL
     Route: 065

REACTIONS (5)
  - Insomnia [Recovering/Resolving]
  - Long QT syndrome [Recovering/Resolving]
  - Hallucination, auditory [Recovering/Resolving]
  - Tremor [Recovering/Resolving]
  - Intentional overdose [Recovering/Resolving]
